FAERS Safety Report 13504508 (Version 2)
Quarter: 2017Q3

REPORT INFORMATION
  Report Type: Spontaneous
  Country: US (occurrence: US)
  Receive Date: 20170502
  Receipt Date: 20170724
  Transmission Date: 20171127
  Serious: No
  Sender: FDA-Public Use
  Company Number: US-IMPAX LABORATORIES, INC-2017-IPXL-00637

PATIENT
  Sex: Female
  Weight: 38 kg

DRUGS (5)
  1. RYTARY [Suspect]
     Active Substance: CARBIDOPA\LEVODOPA
     Indication: PARKINSON^S DISEASE
     Dosage: 48.75 MG/195 MG, 4 CAPSULES, 4 TIMES DAILY
     Route: 048
  2. VITAMIN D3 [Concomitant]
     Active Substance: CHOLECALCIFEROL
     Indication: SUPPLEMENTATION THERAPY
     Dosage: UNK
     Route: 065
  3. FOLIC ACID. [Concomitant]
     Active Substance: FOLIC ACID
     Indication: SUPPLEMENTATION THERAPY
     Dosage: UNK
     Route: 065
  4. RYTARY [Suspect]
     Active Substance: CARBIDOPA\LEVODOPA
     Dosage: 48.75 MG/195 MG, 3 CAPSULES, 4 TIMES DAILY WITH A RYTARY 23.75 MG/95 MG, 1 CAPSULE 4 TIMES DAILY
     Route: 048
     Dates: start: 2015
  5. RYTARY [Suspect]
     Active Substance: CARBIDOPA\LEVODOPA
     Dosage: 48.75 MG/195 MG, 3 CAPSULES 4/DAY
     Route: 048
     Dates: start: 2017

REACTIONS (14)
  - Weight decreased [Unknown]
  - Somnolence [Recovered/Resolved]
  - Dry mouth [Unknown]
  - Gait inability [Recovered/Resolved]
  - Hallucination [Not Recovered/Not Resolved]
  - Drug effect incomplete [Not Recovered/Not Resolved]
  - Feeling abnormal [Recovered/Resolved]
  - Musculoskeletal discomfort [Recovered/Resolved]
  - Malaise [Unknown]
  - Prescribed overdose [Unknown]
  - Hypophagia [Recovered/Resolved]
  - Intentional product use issue [Unknown]
  - Drooling [Recovered/Resolved]
  - Dizziness [Unknown]

NARRATIVE: CASE EVENT DATE: 2016
